FAERS Safety Report 20420497 (Version 1)
Quarter: 2022Q1

REPORT INFORMATION
  Report Type: Spontaneous
  Country: US (occurrence: US)
  Receive Date: 20220203
  Receipt Date: 20220203
  Transmission Date: 20220423
  Serious: No
  Sender: FDA-Public Use
  Company Number: US-GLENMARK PHARMACEUTICALS-2021GMK068175

PATIENT

DRUGS (3)
  1. CLOBETASOL PROPIONATE [Suspect]
     Active Substance: CLOBETASOL PROPIONATE
     Indication: Alopecia
     Dosage: UNK, BID
     Route: 061
  2. CLOBETASOL PROPIONATE [Suspect]
     Active Substance: CLOBETASOL PROPIONATE
     Indication: Rash
  3. CLOBETASOL PROPIONATE [Suspect]
     Active Substance: CLOBETASOL PROPIONATE
     Indication: Pruritus

REACTIONS (1)
  - Product use in unapproved indication [Unknown]
